FAERS Safety Report 15616904 (Version 1)
Quarter: 2018Q4

REPORT INFORMATION
  Report Type: Spontaneous
  Country: PT (occurrence: PT)
  Receive Date: 20181114
  Receipt Date: 20181114
  Transmission Date: 20190205
  Serious: Yes (Disabling)
  Sender: FDA-Public Use
  Company Number: PT-TEVA-2018-PT-975999

PATIENT
  Age: 31 Year
  Sex: Female
  Weight: 108 kg

DRUGS (10)
  1. ADALGUR N [Concomitant]
     Active Substance: ACETAMINOPHEN\THIOCOLCHICOSIDE
     Indication: FIBROMYALGIA
     Dosage: PARACETAMOL + THIOCOLCHICOSIDE (500 MG + 2 MG, TABLET)
     Route: 048
  2. BISOPROLOL: [Concomitant]
     Indication: HYPERTENSION
     Route: 048
  3. REVINTY ELLIPTA [Concomitant]
     Active Substance: FLUTICASONE FUROATE\VILANTEROL TRIFENATATE
     Indication: ASTHMA
     Dosage: SINGLE DOSE
     Route: 055
  4. LERGONIX [Concomitant]
     Indication: ASTHMA
     Route: 048
  5. ESCITALOPRAM [Concomitant]
     Active Substance: ESCITALOPRAM OXALATE
     Indication: DEPRESSION
     Route: 048
  6. TRAZODONE [Concomitant]
     Active Substance: TRAZODONE HYDROCHLORIDE
     Indication: DEPRESSION
     Route: 048
  7. MONTELUKAST [Concomitant]
     Active Substance: MONTELUKAST SODIUM
     Indication: ASTHMA
     Route: 048
  8. MIODIA, CICLOBENZAPRINA, CLORIDRATO [Suspect]
     Active Substance: CYCLOBENZAPRINE
     Indication: FIBROMYALGIA
     Dosage: 30 MILLIGRAM DAILY;
     Route: 048
     Dates: start: 20180803, end: 20180906
  9. LISINOPRIL. [Concomitant]
     Active Substance: LISINOPRIL
     Indication: HYPERTENSION
     Route: 048
  10. AVAMYS [Concomitant]
     Active Substance: FLUTICASONE FUROATE
     Indication: ASTHMA
     Dosage: 27.5 MCG/DOSE
     Route: 045

REACTIONS (2)
  - Hallucination, visual [Recovered/Resolved]
  - Disorientation [Recovered/Resolved]

NARRATIVE: CASE EVENT DATE: 20180817
